FAERS Safety Report 18000296 (Version 3)
Quarter: 2020Q3

REPORT INFORMATION
  Report Type: Spontaneous
  Country: TH (occurrence: TH)
  Receive Date: 20200709
  Receipt Date: 20200801
  Transmission Date: 20201103
  Serious: Yes (Hospitalization, Other)
  Sender: FDA-Public Use
  Company Number: TH-ACCORD-188786

PATIENT
  Age: 58 Year
  Sex: Male

DRUGS (8)
  1. DARUNAVIR [Interacting]
     Active Substance: DARUNAVIR
     Indication: COVID-19 PNEUMONIA
     Dates: start: 20200401, end: 20200403
  2. FAVIPIRAVIR [Concomitant]
     Active Substance: FAVIPIRAVIR
     Indication: COVID-19 PNEUMONIA
     Dosage: 1.2 G/D FROM DAY 3?13
     Dates: start: 20200401
  3. TACROLIMUS. [Suspect]
     Active Substance: TACROLIMUS
     Indication: IMMUNOSUPPRESSION
     Dates: start: 20200401, end: 20200403
  4. HYDROXYCHLOROQUINE [Concomitant]
     Active Substance: HYDROXYCHLOROQUINE
     Indication: COVID-19 PNEUMONIA
     Dates: start: 20200401, end: 20200403
  5. CEFTRIAXONE/CEFTRIAXONE SODIUM [Concomitant]
     Active Substance: CEFTRIAXONE SODIUM
     Indication: INFECTION PROPHYLAXIS
     Dates: start: 20200401
  6. RITONAVIR. [Interacting]
     Active Substance: RITONAVIR
     Indication: COVID-19 PNEUMONIA
     Dates: start: 20200401, end: 20200403
  7. AZITHROMYCIN ANHYDROUS. [Concomitant]
     Active Substance: AZITHROMYCIN ANHYDROUS
     Indication: COVID-19 PNEUMONIA
     Dates: start: 20200401, end: 20200403
  8. PREDNISOLONE. [Concomitant]
     Active Substance: PREDNISOLONE
     Indication: IMMUNOSUPPRESSION
     Dates: start: 2018

REACTIONS (2)
  - Drug interaction [Unknown]
  - Acute kidney injury [Recovered/Resolved]

NARRATIVE: CASE EVENT DATE: 20200402
